FAERS Safety Report 7528715-7 (Version None)
Quarter: 2011Q2

REPORT INFORMATION
  Report Type: 
  Country: None (occurrence: None)
  Receive Date: 20110607
  Receipt Date: 20110607
  Transmission Date: 20111010
  Serious: Yes (Hospitalization, Other)
  Sender: FDA-Public Use
  Company Number: NL-ROXANE LABORATORIES, INC.-2011-DE-03277GD

PATIENT
  Sex: Female

DRUGS (3)
  1. PROPRANOLOL [Suspect]
     Indication: HAEMANGIOMA OF SKIN
     Dosage: 2 MG/KG
  2. PREDNISONE [Suspect]
     Indication: HAEMANGIOMA OF SKIN
     Dosage: 4 MG/KG/DAY
  3. PREDNISONE [Suspect]
     Dosage: 5 MG (0.5 MG/KG/DAY); AT START OF PROPRANOLOL EVERY OTHER WEEK DECREASED WITH 0.1 MG/KG/DAY AND LATE

REACTIONS (6)
  - HYPOGLYCAEMIA [None]
  - AGITATION [None]
  - BONE DENSITY DECREASED [None]
  - HYPERTENSION [None]
  - ADRENAL INSUFFICIENCY [None]
  - CUSHINGOID [None]
